FAERS Safety Report 9057346 (Version 1)
Quarter: 2013Q1

REPORT INFORMATION
  Report Type: Spontaneous
  Country: AU (occurrence: AU)
  Receive Date: 20130204
  Receipt Date: 20130204
  Transmission Date: 20140127
  Serious: Yes (Other)
  Sender: FDA-Public Use
  Company Number: PHHY2013AU008502

PATIENT
  Sex: Female

DRUGS (2)
  1. ALPRAZOLAM SANDOZ [Suspect]
     Dosage: 4 MG, QD
     Route: 048
  2. VITAMIN B12 [Concomitant]

REACTIONS (4)
  - Menopausal symptoms [Not Recovered/Not Resolved]
  - Asthenia [Not Recovered/Not Resolved]
  - Somnolence [Not Recovered/Not Resolved]
  - Headache [Recovered/Resolved]
